FAERS Safety Report 8021197 (Version 6)
Quarter: 2013Q2

REPORT INFORMATION
  Report Type: Spontaneous
  Country: US (occurrence: US)
  Receive Date: 20110705
  Receipt Date: 20130430
  Transmission Date: 20140414
  Serious: Yes (Other)
  Sender: FDA-Public Use
  Company Number: US-ROCHE-786582

PATIENT
  Age: 37 Year
  Sex: Male
  Weight: 83.9 kg

DRUGS (5)
  1. ACCUTANE [Suspect]
     Indication: ACNE
     Dosage: THERAPY DURATION FOR 3 MOTNHS
     Route: 065
  2. ACCUTANE [Suspect]
     Route: 065
     Dates: start: 1998, end: 1999
  3. ACCUTANE [Suspect]
     Dosage: THERAPY DURATION FOR 1 MONTH
     Route: 065
  4. ACCUTANE [Suspect]
     Dosage: THERAPY DURATION FOR 1 MONTH
     Route: 065
  5. AMNESTEEM [Suspect]
     Indication: ACNE
     Route: 065
     Dates: start: 20080218

REACTIONS (5)
  - Colitis ulcerative [Unknown]
  - Depression [Unknown]
  - Injury [Unknown]
  - Back pain [Unknown]
  - Arthralgia [Unknown]
